FAERS Safety Report 7804780-4 (Version None)
Quarter: 2011Q4

REPORT INFORMATION
  Report Type: 
  Country: None (occurrence: None)
  Receive Date: 20111010
  Receipt Date: 20111004
  Transmission Date: 20120403
  Serious: Yes (Life-Threatening, Hospitalization, Disabling)
  Sender: FDA-Public Use
  Company Number: US-CELGENEUS-163-21880-11070360

PATIENT
  Age: 65 Year
  Sex: Female
  Weight: 90.8 kg

DRUGS (16)
  1. DEXAMETHASONE [Suspect]
     Indication: MULTIPLE MYELOMA
     Dosage: 20 MILLIGRAM
     Route: 048
     Dates: start: 20101218, end: 20110602
  2. ACYCLOVIR [Concomitant]
     Route: 065
  3. DOXEPIN [Concomitant]
     Route: 065
  4. HEOCYTE [Concomitant]
     Route: 065
  5. ALLOPURINOL [Concomitant]
     Route: 065
  6. PRAVASTATIN [Concomitant]
     Route: 065
  7. BETASERON [Concomitant]
     Route: 065
  8. COREG [Concomitant]
     Route: 065
  9. VITAMIN D [Concomitant]
     Route: 065
  10. REVLIMID [Suspect]
     Indication: MULTIPLE MYELOMA
     Dosage: 25 MILLIGRAM
     Route: 048
     Dates: start: 20101220, end: 20110609
  11. METFORMIN HYDROCHLORIDE [Concomitant]
     Route: 065
  12. LOTREL [Concomitant]
     Route: 065
  13. TRICORE [Concomitant]
     Route: 065
  14. ASPIRIN [Concomitant]
     Route: 065
  15. VELCADE [Suspect]
     Indication: MULTIPLE MYELOMA
     Dosage: 1.9 MILLIGRAM
     Route: 041
     Dates: start: 20101212, end: 20110602
  16. WARFARIN SODIUM [Concomitant]
     Route: 065

REACTIONS (11)
  - DYSPNOEA [None]
  - RENAL TUBULAR NECROSIS [None]
  - ASTHENIA [None]
  - RESPIRATORY FAILURE [None]
  - PLEURAL EFFUSION [None]
  - RENAL FAILURE [None]
  - FEBRILE NEUTROPENIA [None]
  - PNEUMONIA [None]
  - ATRIAL FIBRILLATION [None]
  - GASTROINTESTINAL HAEMORRHAGE [None]
  - URINARY TRACT INFECTION ENTEROCOCCAL [None]
